FAERS Safety Report 5923866-2 (Version None)
Quarter: 2008Q4

REPORT INFORMATION
  Report Type: 
  Country: None (occurrence: None)
  Receive Date: 20081020
  Receipt Date: 20081010
  Transmission Date: 20090506
  Serious: Yes (Other)
  Sender: FDA-Public Use
  Company Number: BR-ROCHE-580887

PATIENT
  Sex: Female

DRUGS (3)
  1. ROACUTAN [Suspect]
     Indication: DRUG USE FOR UNKNOWN INDICATION
     Route: 065
  2. ROACUTAN [Suspect]
     Route: 065
  3. ROACUTAN [Suspect]
     Route: 065
     Dates: start: 20080701

REACTIONS (8)
  - CYST [None]
  - HOMICIDAL IDEATION [None]
  - ORAL DISORDER [None]
  - PAIN [None]
  - STRESS [None]
  - SUICIDAL IDEATION [None]
  - TACHYCARDIA [None]
  - VISUAL IMPAIRMENT [None]
